FAERS Safety Report 14411329 (Version 1)
Quarter: 2018Q1

REPORT INFORMATION
  Report Type: Spontaneous
  Country: NL (occurrence: NL)
  Receive Date: 20180118
  Receipt Date: 20180118
  Transmission Date: 20180509
  Serious: Yes (Other)
  Sender: FDA-Public Use
  Company Number: NL-TEVA-2018-NL-849324

PATIENT
  Age: 52 Year
  Sex: Female
  Weight: 50 kg

DRUGS (1)
  1. LORAZEPAM 2,5MG [Suspect]
     Active Substance: LORAZEPAM
     Indication: DEPRESSION
     Dosage: 1X PER EVENING 1 PIECE
     Route: 065
     Dates: start: 2013

REACTIONS (3)
  - Withdrawal syndrome [Recovered/Resolved with Sequelae]
  - Suicidal ideation [Recovered/Resolved with Sequelae]
  - Rebound psychosis [Recovered/Resolved with Sequelae]

NARRATIVE: CASE EVENT DATE: 201709
